FAERS Safety Report 19901834 (Version 1)
Quarter: 2021Q3

REPORT INFORMATION
  Report Type: Spontaneous
  Country: CZ (occurrence: CZ)
  Receive Date: 20210930
  Receipt Date: 20210930
  Transmission Date: 20211014
  Serious: Yes (Other)
  Sender: FDA-Public Use
  Company Number: CZ-MYLANLABS-2021M1066291

PATIENT
  Age: 66 Year
  Sex: Male

DRUGS (13)
  1. VALPROATE [Concomitant]
     Active Substance: VALPROIC ACID
     Dosage: 600 MILLIGRAM, QD (300 MILLIGRAM, 2X/DAY (BID))
     Dates: start: 201303
  2. VALPROATE [Concomitant]
     Active Substance: VALPROIC ACID
     Dosage: 2400 MILLIGRAM, QD (1200 MILLIGRAM, 2X/DAY (BID))
     Dates: start: 201303
  3. CLONAZEPAM. [Concomitant]
     Active Substance: CLONAZEPAM
     Dosage: 3 MILLIGRAM, QD (1 MILLIGRAM, 3X/DAY (TID))
  4. LEVETIRACETAM. [Suspect]
     Active Substance: LEVETIRACETAM
     Indication: SEIZURE
     Dosage: 3000 MILLIGRAM, QD (1500 MILLIGRAM, 2X/DAY (BID))
     Dates: start: 2013, end: 202008
  5. BRIVARACETAM [Suspect]
     Active Substance: BRIVARACETAM
     Indication: PRODUCT USED FOR UNKNOWN INDICATION
     Dosage: UNK (50 MG (1?0?2 ))
     Dates: start: 202008
  6. VALPROATE [Concomitant]
     Active Substance: VALPROIC ACID
     Dosage: 1200 MILLIGRAM, QD (600 MILLIGRAM, 2X/DAY (BID))
  7. LEVETIRACETAM. [Suspect]
     Active Substance: LEVETIRACETAM
     Dosage: 2000 MILLIGRAM, QD (1000 MILLIGRAM, 2X/DAY (BID))
     Dates: start: 201210, end: 2013
  8. VALPROATE [Concomitant]
     Active Substance: VALPROIC ACID
     Dosage: 900 MILLIGRAM, QD (450 MILLIGRAM, 2X/DAY (BID))
     Dates: start: 201505, end: 201511
  9. VALPROATE [Concomitant]
     Active Substance: VALPROIC ACID
     Dosage: 1800 MILLIGRAM, QD (900 MILLIGRAM, 2X/DAY (BID))
     Dates: start: 201005
  10. CLONAZEPAM. [Concomitant]
     Active Substance: CLONAZEPAM
     Dosage: 6 MILLIGRAM, QD (2 MILLIGRAM, 3X/DAY (TID))
     Dates: start: 2009
  11. LEVETIRACETAM. [Suspect]
     Active Substance: LEVETIRACETAM
     Dosage: 2500 MILLIGRAM, QD (1250 MILLIGRAM, 2X/DAY (BID))
     Dates: start: 2013, end: 2013
  12. VALPROATE [Concomitant]
     Active Substance: VALPROIC ACID
     Indication: PRODUCT USED FOR UNKNOWN INDICATION
     Dosage: 1200 MILLIGRAM, QD (1200MG DAILY)
     Dates: start: 201303
  13. CLONAZEPAM. [Concomitant]
     Active Substance: CLONAZEPAM
     Indication: PRODUCT USED FOR UNKNOWN INDICATION
     Dosage: 4 MILLIGRAM, QD

REACTIONS (3)
  - Limb injury [Recovered/Resolved]
  - Product use issue [Unknown]
  - Seizure [Recovered/Resolved]

NARRATIVE: CASE EVENT DATE: 201303
